FAERS Safety Report 5672883-9 (Version None)
Quarter: 2008Q1

REPORT INFORMATION
  Report Type: 
  Country: None (occurrence: None)
  Receive Date: 20080319
  Receipt Date: 20071119
  Transmission Date: 20080703
  Serious: No
  Sender: FDA-Public Use
  Company Number: US-ASTRAZENECA-2007UW26715

PATIENT
  Age: 74 Year
  Sex: Female

DRUGS (8)
  1. SYMBICORT [Suspect]
     Indication: ASTHMA
     Dosage: 80/4.5 2 PUFFS BID
     Route: 055
  2. SYMBICORT [Suspect]
     Dosage: 80/4.5 2 PUFFS QD
     Route: 055
     Dates: end: 20071117
  3. NORVASC [Concomitant]
  4. ALTACE [Concomitant]
  5. PLAQUENIL [Concomitant]
  6. PREVACID [Concomitant]
  7. SYNTHROID [Concomitant]
  8. RESTASIS [Concomitant]

REACTIONS (2)
  - ABNORMAL SENSATION IN EYE [None]
  - EYE IRRITATION [None]
